FAERS Safety Report 6631571-2 (Version None)
Quarter: 2010Q1

REPORT INFORMATION
  Report Type: 
  Country: None (occurrence: None)
  Receive Date: 20100312
  Receipt Date: 20100301
  Transmission Date: 20100710
  Serious: Yes (Other)
  Sender: FDA-Public Use
  Company Number: IL-BRISTOL-MYERS SQUIBB COMPANY-14997241

PATIENT
  Age: 75 Year
  Sex: Female

DRUGS (1)
  1. PRAVASTATIN SODIUM [Suspect]

REACTIONS (2)
  - SKIN ULCER [None]
  - VASCULITIS [None]
